FAERS Safety Report 8291202 (Version 2)
Quarter: 2013Q1

REPORT INFORMATION
  Report Type: Spontaneous
  Country: US (occurrence: US)
  Receive Date: 20111214
  Receipt Date: 20130211
  Transmission Date: 20140127
  Serious: Yes (Other)
  Sender: FDA-Public Use
  Company Number: US-ROCHE-1021219

PATIENT
  Sex: Female
  Weight: 77.18 kg

DRUGS (3)
  1. ACCUTANE [Suspect]
     Indication: ACNE
     Route: 065
     Dates: start: 198501, end: 198504
  2. ACCUTANE [Suspect]
     Route: 065
     Dates: start: 19880802, end: 19881127
  3. ACCUTANE [Suspect]
     Route: 065
     Dates: start: 198808, end: 198901

REACTIONS (4)
  - Proctitis ulcerative [Unknown]
  - Inflammatory bowel disease [Unknown]
  - Depression [Unknown]
  - Injury [Unknown]
